FAERS Safety Report 21928006 (Version 1)
Quarter: 2023Q1

REPORT INFORMATION
  Report Type: Spontaneous
  Country: US (occurrence: US)
  Receive Date: 20230130
  Receipt Date: 20230130
  Transmission Date: 20230418
  Serious: No
  Sender: FDA-Public Use
  Company Number: US-MYLANLABS-2023M1006261

PATIENT
  Sex: Male

DRUGS (2)
  1. SEMGLEE (INSULIN GLARGINE-YFGN) [Suspect]
     Active Substance: INSULIN GLARGINE-YFGN
     Indication: Type 2 diabetes mellitus
     Dosage: 100 INTERNATIONAL UNIT, QD (100 UNITS ONE TIME A DAY)
     Route: 058
     Dates: start: 202204
  2. SEMGLEE (INSULIN GLARGINE-YFGN) [Suspect]
     Active Substance: INSULIN GLARGINE-YFGN
     Dosage: 100 INTERNATIONAL UNIT, QD (100 UNITS ONE TIME A DAY)
     Route: 058

REACTIONS (3)
  - Device mechanical issue [Unknown]
  - Product storage error [Unknown]
  - Wrong technique in product usage process [Unknown]
